FAERS Safety Report 23703605 (Version 1)
Quarter: 2024Q2

REPORT INFORMATION
  Report Type: Spontaneous
  Country: US (occurrence: US)
  Receive Date: 20240403
  Receipt Date: 20240403
  Transmission Date: 20240716
  Serious: Yes (Hospitalization)
  Sender: FDA-Public Use
  Company Number: US-PARI RESPIRATORY EQUIPMENT, INC.-2024PAR00028

PATIENT
  Sex: Male

DRUGS (11)
  1. KITABIS PAK [Suspect]
     Active Substance: TOBRAMYCIN
     Indication: Cystic fibrosis
     Dosage: 1 VIAL (5 ML) VIA NEBULIZER EVERY 12 HOURS FOR 28 DAYS FOLLOWED BY 28 DAYS OFF
     Dates: start: 20210622
  2. KITABIS PAK [Suspect]
     Active Substance: TOBRAMYCIN
     Indication: Lung disorder
  3. AZITHROMYCIN [Concomitant]
     Active Substance: AZITHROMYCIN
  4. DULERA [Concomitant]
     Active Substance: FORMOTEROL FUMARATE DIHYDRATE\MOMETASONE FUROATE
  5. FLOVENT HFA [Concomitant]
     Active Substance: FLUTICASONE PROPIONATE
  6. FLUTICASONE [Concomitant]
     Active Substance: FLUTICASONE
  7. MONTELUKAST SODIUM [Concomitant]
     Active Substance: MONTELUKAST SODIUM
  8. MVW COMPLETE FORMULATION CHEWABLES [Concomitant]
  9. VITAMINS\ZINC [Concomitant]
     Active Substance: VITAMINS\ZINC
  10. OMEPRAZOLE [Concomitant]
     Active Substance: OMEPRAZOLE
  11. PROAIR HFA [Concomitant]
     Active Substance: ALBUTEROL SULFATE

REACTIONS (1)
  - Bronchopulmonary aspergillosis allergic [Unknown]
